FAERS Safety Report 26209723 (Version 1)
Quarter: 2025Q4

REPORT INFORMATION
  Report Type: Spontaneous
  Country: GB (occurrence: GB)
  Receive Date: 20251229
  Receipt Date: 20251229
  Transmission Date: 20260117
  Serious: Yes (Other)
  Sender: PFIZER
  Company Number: None

PATIENT
  Age: 28 Year
  Sex: Female
  Weight: 67 kg

DRUGS (3)
  1. SPIRONOLACTONE [Suspect]
     Active Substance: SPIRONOLACTONE
     Indication: Anxiety
     Dosage: 40 MG, AS NEEDED, EVERY 8 HOURS
     Dates: start: 20251213, end: 20251220
  2. PROPRANOLOL [Suspect]
     Active Substance: PROPRANOLOL HYDROCHLORIDE
     Indication: Anxiety
     Dosage: 40 MG, AS NEEDED, EVERY 8 HOUR
     Dates: start: 20251213, end: 20251220
  3. LISDEXAMFETAMINE [Concomitant]
     Active Substance: LISDEXAMFETAMINE
     Indication: Attention deficit hyperactivity disorder
     Dosage: UNK
     Dates: start: 20250201

REACTIONS (2)
  - Paranoia [Recovered/Resolved]
  - Behaviour disorder [Recovered/Resolved]
